FAERS Safety Report 9410158 (Version 1)
Quarter: 2013Q3

REPORT INFORMATION
  Report Type: Spontaneous
  Country: AT (occurrence: AT)
  Receive Date: 20130719
  Receipt Date: 20130719
  Transmission Date: 20140515
  Serious: Yes (Other)
  Sender: FDA-Public Use
  Company Number: AT-ROXANE LABORATORIES, INC.-2013-RO-01178RO

PATIENT
  Age: 49 Year
  Sex: Female

DRUGS (6)
  1. LORAZEPAM [Suspect]
     Dosage: 3.5 MG
  2. QUETIAPINE FUMARATE [Suspect]
     Indication: INSOMNIA
     Dosage: 100 MG
  3. QUETIAPINE FUMARATE [Suspect]
     Dosage: 200 MG
  4. ESCITALOPRAM [Suspect]
     Dosage: 20 MG
  5. MIRTAZAPINE [Suspect]
     Dosage: 15 MG
  6. MIRTAZAPINE [Suspect]
     Dosage: 30 MG

REACTIONS (1)
  - Restless legs syndrome [Recovered/Resolved]
